FAERS Safety Report 5345212-8 (Version None)
Quarter: 2007Q2

REPORT INFORMATION
  Report Type: 
  Country: None (occurrence: None)
  Receive Date: 20070605
  Receipt Date: 20070530
  Transmission Date: 20071010
  Serious: Yes (Death, Hospitalization, Other)
  Sender: FDA-Public Use
  Company Number: PHBS2007BR07847

PATIENT
  Age: 62 Year
  Sex: Male

DRUGS (3)
  1. STARLIX [Suspect]
     Indication: DIABETES MELLITUS
     Dosage: 60 MG, BID
     Route: 048
     Dates: end: 20070227
  2. AAS [Concomitant]
  3. BUSCOPAN [Concomitant]
     Dosage: UNK, BID

REACTIONS (11)
  - ANGIOPLASTY [None]
  - CATHETERISATION CARDIAC [None]
  - DYSURIA [None]
  - ENTERAL NUTRITION [None]
  - HAEMODIALYSIS [None]
  - MULTI-ORGAN FAILURE [None]
  - PAIN [None]
  - PNEUMONIA [None]
  - RENAL FAILURE [None]
  - SEPSIS [None]
  - VENTRICULAR FIBRILLATION [None]
